FAERS Safety Report 13003933 (Version 1)
Quarter: 2016Q4

REPORT INFORMATION
  Report Type: Spontaneous
  Country: SE (occurrence: SE)
  Receive Date: 20161206
  Receipt Date: 20161206
  Transmission Date: 20170207
  Serious: Yes (Death, Other)
  Sender: FDA-Public Use
  Company Number: SE-GILEAD-2016-0245934

PATIENT
  Age: 46 Year
  Sex: Male

DRUGS (7)
  1. IMOVANE [Suspect]
     Active Substance: ZOPICLONE
     Indication: PRODUCT USED FOR UNKNOWN INDICATION
     Route: 065
     Dates: start: 20100916
  2. MIRTAZAPIN BLUEFISH [Suspect]
     Active Substance: MIRTAZAPINE
     Indication: PRODUCT USED FOR UNKNOWN INDICATION
     Route: 065
     Dates: start: 20150422
  3. DIVISUN [Concomitant]
  4. ANAFRANIL [Suspect]
     Active Substance: CLOMIPRAMINE HYDROCHLORIDE
     Indication: PRODUCT USED FOR UNKNOWN INDICATION
     Dosage: UNK
     Route: 065
     Dates: start: 20151106
  5. SOVALDI [Suspect]
     Active Substance: SOFOSBUVIR
     Indication: PRODUCT USED FOR UNKNOWN INDICATION
     Route: 048
     Dates: start: 20160919
  6. BUPRENORPHINE ORIFARM [Concomitant]
     Route: 060
  7. DAKLINZA [Concomitant]
     Active Substance: DACLATASVIR

REACTIONS (2)
  - Toxicity to various agents [Fatal]
  - Death [Fatal]

NARRATIVE: CASE EVENT DATE: 20161101
